FAERS Safety Report 8538450-4 (Version None)
Quarter: 2012Q3

REPORT INFORMATION
  Report Type: 
  Country: None (occurrence: None)
  Receive Date: 20120712
  Receipt Date: 20120702
  Transmission Date: 20120928
  Serious: Yes (Other)
  Sender: FDA-Public Use
  Company Number: AUR-APL-2012-02876

PATIENT
  Age: 39 Year
  Sex: Male
  Weight: 86 kg

DRUGS (10)
  1. ORPHENADRINE CITRATE [Suspect]
     Indication: PRODUCT USED FOR UNKNOWN INDICATION
     Dosage: 150 MG (50 MG, 3 IN 1 D); 100 MG AT 9PM AND 50MG AT 6 PM (150 MG, 1 IN 1 D)
     Dates: end: 20120523
  2. ORPHENADRINE CITRATE [Suspect]
     Indication: PRODUCT USED FOR UNKNOWN INDICATION
     Dosage: 150 MG (50 MG, 3 IN 1 D); 100 MG AT 9PM AND 50MG AT 6 PM (150 MG, 1 IN 1 D)
     Dates: start: 20120524
  3. SODIUM DOCUSATE (DOCUSATE SODIUM) [Concomitant]
  4. MULTIVITAMIN (MULTIVITAMIN /00831791/) [Concomitant]
  5. RISPERDAL CONSTA [Concomitant]
  6. MIRTAZAPINE [Concomitant]
  7. VITAMIN B COMPOUND STRONG (THIAMINE HYDROCHLORIDE) [Concomitant]
  8. RIBAVIRIN [Suspect]
     Indication: PRODUCT USED FOR UNKNOWN INDICATION
     Dosage: 1200 MG (600 MG, 2 IN 1 D)
     Dates: start: 20111101
  9. PEGINTERFERON ALFA-2A [Suspect]
     Indication: PRODUCT USED FOR UNKNOWN INDICATION
     Dosage: 19.2857 MCG (135 MCG, 1 IN 1 WK), SUBCUTANEOUS
     Route: 058
  10. SENNA-MINT WAF [Concomitant]

REACTIONS (3)
  - DRUG INTERACTION [None]
  - PALPITATIONS [None]
  - HALLUCINATION, AUDITORY [None]
